FAERS Safety Report 20933040 (Version 1)
Quarter: 2022Q2

REPORT INFORMATION
  Report Type: Spontaneous
  Country: FR (occurrence: FR)
  Receive Date: 20220608
  Receipt Date: 20220608
  Transmission Date: 20220720
  Serious: Yes (Other)
  Sender: FDA-Public Use
  Company Number: None

PATIENT
  Age: 87 Year
  Sex: Female
  Weight: 66 kg

DRUGS (4)
  1. OFLOXACIN [Suspect]
     Active Substance: OFLOXACIN
     Indication: Urinary tract infection
     Dosage: 400MG, FREQUENCY TIME 1DAYS, DURATION 4DAYS
     Route: 048
     Dates: start: 20220420, end: 20220424
  2. ETOPOSIDE [Suspect]
     Active Substance: ETOPOSIDE
     Indication: Non-Hodgkin^s lymphoma
     Dosage: 50MG, FREQUENCY TIME 1DAYS, DURATION 21DAYS
     Route: 048
     Dates: start: 20220331, end: 20220421
  3. FUROSEMIDE [Concomitant]
     Active Substance: FUROSEMIDE
     Indication: Hypertension
     Dosage: 40MG, FREQUENCY TIME 1DAYS
     Route: 048
     Dates: end: 20220427
  4. RAMIPRIL [Concomitant]
     Active Substance: RAMIPRIL
     Indication: Hypertension
     Dosage: 5MG, FREQUENCY TIME 1DAYS
     Route: 048
     Dates: end: 20220427

REACTIONS (2)
  - Encephalopathy [Recovering/Resolving]
  - Extrapyramidal disorder [Recovering/Resolving]

NARRATIVE: CASE EVENT DATE: 20220401
